FAERS Safety Report 5900946-9 (Version None)
Quarter: 2008Q3

REPORT INFORMATION
  Report Type: 
  Country: None (occurrence: None)
  Receive Date: 20080924
  Receipt Date: 20080915
  Transmission Date: 20090109
  Serious: Yes (Other)
  Sender: FDA-Public Use
  Company Number: GXKR2008GB08823

PATIENT
  Age: 60 Year
  Sex: Male
  Weight: 97 kg

DRUGS (8)
  1. BISOPROLOL FUMARATE [Suspect]
     Indication: VENTRICULAR TACHYCARDIA
     Dosage: SEE IMAGE
     Route: 048
     Dates: start: 20040101
  2. AMIODARONE HCL [Concomitant]
  3. ACETYLSALICYLIC ACID SRT [Concomitant]
  4. CITALOPRAM HYDROBROMIDE [Concomitant]
  5. DOSULEPIN (DOSULEPIN) [Concomitant]
  6. LANSOPRAZOLE [Concomitant]
  7. NICORANDIL (NICORANDIL) [Concomitant]
  8. PRAVASTATIN [Concomitant]

REACTIONS (2)
  - ALVEOLITIS FIBROSING [None]
  - IMPAIRED WORK ABILITY [None]
